FAERS Safety Report 9839046 (Version 4)
Quarter: 2014Q1

REPORT INFORMATION
  Report Type: Spontaneous
  Country: US (occurrence: US)
  Receive Date: 20140123
  Receipt Date: 20140321
  Transmission Date: 20141002
  Serious: Yes (Disabling, Other)
  Sender: FDA-Public Use
  Company Number: CHPA2013US014863

PATIENT
  Age: 75 Year
  Sex: Female

DRUGS (1)
  1. TRANSDERM SCOP [Suspect]
     Indication: MOTION SICKNESS
     Dosage: 1 DF, Q72H
     Route: 062

REACTIONS (10)
  - Blindness [Recovered/Resolved]
  - Activities of daily living impaired [Unknown]
  - Mydriasis [Recovered/Resolved]
  - Eye pain [Unknown]
  - Ocular discomfort [Unknown]
  - Anxiety [Unknown]
  - Stress [Unknown]
  - Fear [Unknown]
  - Emotional distress [Unknown]
  - Headache [Unknown]
